FAERS Safety Report 12535004 (Version 1)
Quarter: 2016Q3

REPORT INFORMATION
  Report Type: Spontaneous
  Country: US (occurrence: US)
  Receive Date: 20160707
  Receipt Date: 20160707
  Transmission Date: 20161109
  Serious: No
  Sender: FDA-Public Use
  Company Number: US-TEVA-642118USA

PATIENT
  Sex: Female

DRUGS (1)
  1. CHLORDIAZEPOXIDE. [Suspect]
     Active Substance: CHLORDIAZEPOXIDE

REACTIONS (4)
  - Nervousness [Unknown]
  - Drug ineffective [Unknown]
  - Anxiety [Unknown]
  - Insomnia [Unknown]
